FAERS Safety Report 25288070 (Version 1)
Quarter: 2025Q2

REPORT INFORMATION
  Report Type: Spontaneous
  Country: SE (occurrence: SE)
  Receive Date: 20250509
  Receipt Date: 20250509
  Transmission Date: 20250717
  Serious: Yes (Hospitalization, Other)
  Sender: AZURITY PHARMACEUTICALS
  Company Number: SE-AZURITY PHARMACEUTICALS, INC.-AZR202504-001248

PATIENT
  Age: 24 Year
  Sex: Male

DRUGS (2)
  1. IVERMECTIN [Suspect]
     Active Substance: IVERMECTIN
     Indication: Acarodermatitis
     Route: 065
  2. OXATOMIDE [Suspect]
     Active Substance: OXATOMIDE
     Indication: Product used for unknown indication
     Route: 065

REACTIONS (5)
  - Fall [Recovered/Resolved]
  - Seizure [Recovered/Resolved]
  - Confusional state [Recovered/Resolved]
  - Headache [Recovered/Resolved]
  - Fatigue [Recovered/Resolved]
